FAERS Safety Report 9845339 (Version 1)
Quarter: 2014Q1

REPORT INFORMATION
  Report Type: Spontaneous
  Country: US (occurrence: None)
  Receive Date: 20140123
  Receipt Date: 20140123
  Transmission Date: 20141002
  Serious: Yes (Other)
  Sender: FDA-Public Use
  Company Number: None

PATIENT
  Age: 33 Year
  Sex: Female
  Weight: 54.43 kg

DRUGS (1)
  1. ESCITALOPRAM 10 MG [Suspect]
     Indication: GENERALISED ANXIETY DISORDER
     Dosage: 1 PILL  ONCE DAILY  TAKEN BY MOUTH
     Route: 048
     Dates: start: 20120601, end: 20121130

REACTIONS (5)
  - Mental disorder [None]
  - Panic attack [None]
  - Depression [None]
  - Anxiety [None]
  - Product substitution issue [None]
